FAERS Safety Report 13511198 (Version 2)
Quarter: 2017Q3

REPORT INFORMATION
  Report Type: Spontaneous
  Country: JP (occurrence: JP)
  Receive Date: 20170503
  Receipt Date: 20170724
  Transmission Date: 20171127
  Serious: Yes (Death, Other)
  Sender: FDA-Public Use
  Company Number: JP-SEATTLE GENETICS-2017SGN01120

PATIENT
  Age: 96 Year
  Sex: Male

DRUGS (1)
  1. ADCETRIS [Suspect]
     Active Substance: BRENTUXIMAB VEDOTIN
     Indication: HODGKIN^S DISEASE
     Dosage: 70 MG, Q21D
     Route: 041

REACTIONS (7)
  - Hepatic function abnormal [Unknown]
  - Condition aggravated [Unknown]
  - Acute respiratory failure [Fatal]
  - Blood pressure decreased [Fatal]
  - Jaundice [Unknown]
  - Renal impairment [Unknown]
  - Urine output decreased [Unknown]
